FAERS Safety Report 23320731 (Version 1)
Quarter: 2023Q4

REPORT INFORMATION
  Report Type: Spontaneous
  Country: US (occurrence: US)
  Receive Date: 20231220
  Receipt Date: 20231220
  Transmission Date: 20240110
  Serious: No
  Sender: FDA-Public Use
  Company Number: US-PFIZER INC-202300434180

PATIENT
  Age: 13 Year
  Sex: Male

DRUGS (2)
  1. GENOTROPIN [Suspect]
     Active Substance: SOMATROPIN
     Dosage: 1.4 MG, ALTERNATE DAY (ALTERNATE 1.4 MG + 1.6 MG EVERY OTHER DAY, 7 DAYS PER WEEK)
  2. GENOTROPIN [Suspect]
     Active Substance: SOMATROPIN
     Dosage: 1.6 MG, ALTERNATE DAY (ALTERNATE 1.4 MG + 1.6 MG EVERY OTHER DAY, 7 DAYS PER WEEK)

REACTIONS (1)
  - Device leakage [Unknown]
